FAERS Safety Report 5435526-5 (Version None)
Quarter: 2007Q3

REPORT INFORMATION
  Report Type: 
  Country: None (occurrence: None)
  Receive Date: 20070831
  Receipt Date: 20070822
  Transmission Date: 20080115
  Serious: No
  Sender: FDA-Public Use
  Company Number: A0671067A

PATIENT
  Sex: Female

DRUGS (1)
  1. ALLI [Suspect]
     Dates: start: 20070617

REACTIONS (6)
  - ABDOMINAL DISTENSION [None]
  - BREAST TENDERNESS [None]
  - HUNGER [None]
  - MENSTRUAL DISORDER [None]
  - MUSCLE SPASMS [None]
  - POOR QUALITY SLEEP [None]
